FAERS Safety Report 16855808 (Version 1)
Quarter: 2019Q3

REPORT INFORMATION
  Report Type: Spontaneous
  Country: US (occurrence: US)
  Receive Date: 20190926
  Receipt Date: 20190926
  Transmission Date: 20191005
  Serious: Yes (Hospitalization, Other)
  Sender: FDA-Public Use
  Company Number: US-HIKMA PHARMACEUTICALS USA INC.-US-H14001-19-04984

PATIENT
  Age: 80 Year
  Sex: Female
  Weight: 66.2 kg

DRUGS (1)
  1. HEPARIN [Suspect]
     Active Substance: HEPARIN SODIUM
     Indication: THROMBOSIS PROPHYLAXIS
     Route: 058

REACTIONS (5)
  - Haemorrhage [Not Recovered/Not Resolved]
  - Aphasia [Unknown]
  - Hemiplegia [Unknown]
  - Activated partial thromboplastin time prolonged [Recovered/Resolved]
  - Gaze palsy [Recovered/Resolved]
